FAERS Safety Report 10044459 (Version 4)
Quarter: 2014Q3

REPORT INFORMATION
  Report Type: Spontaneous
  Country: US (occurrence: US)
  Receive Date: 20140328
  Receipt Date: 20140821
  Transmission Date: 20150326
  Serious: Yes (Death, Hospitalization, Other)
  Sender: FDA-Public Use
  Company Number: US-009507513-1403USA012671

PATIENT
  Sex: Male
  Weight: 71.2 kg

DRUGS (3)
  1. GLUMETZA [Concomitant]
     Active Substance: METFORMIN HYDROCHLORIDE
     Indication: TYPE 2 DIABETES MELLITUS
     Dosage: 500 MG QD-1000 MG BID
     Dates: start: 20090422
  2. JANUVIA [Suspect]
     Active Substance: SITAGLIPTIN PHOSPHATE
     Indication: TYPE 2 DIABETES MELLITUS
     Dosage: UNK
     Route: 048
     Dates: end: 20090422
  3. JANUMET [Suspect]
     Active Substance: METFORMIN HYDROCHLORIDE\SITAGLIPTIN PHOSPHATE
     Indication: TYPE 2 DIABETES MELLITUS
     Dosage: 50 MG/1000 MG, BID
     Route: 048
     Dates: start: 20110208, end: 201205

REACTIONS (26)
  - Lipase increased [Unknown]
  - Eustachian tube dysfunction [Unknown]
  - Hypercholesterolaemia [Unknown]
  - Insomnia [Unknown]
  - Gastrooesophageal reflux disease [Unknown]
  - Breath sounds abnormal [Unknown]
  - Dyspepsia [Unknown]
  - Cholecystectomy [Unknown]
  - Nasal congestion [Unknown]
  - Dysuria [Unknown]
  - Gallbladder disorder [Recovered/Resolved]
  - Hepatic enzyme increased [Unknown]
  - Dizziness [Unknown]
  - Adenocarcinoma pancreas [Fatal]
  - Skin lesion excision [Unknown]
  - Rectal haemorrhage [Unknown]
  - Diverticulum [Unknown]
  - Dysgeusia [Unknown]
  - Gastroenteritis viral [Recovered/Resolved]
  - Constipation [Unknown]
  - Abdominal pain upper [Unknown]
  - Fatigue [Unknown]
  - Haemorrhoids [Unknown]
  - Erectile dysfunction [Unknown]
  - Large intestine polyp [Unknown]
  - Knee operation [Unknown]

NARRATIVE: CASE EVENT DATE: 2009
